FAERS Safety Report 8266043-5 (Version None)
Quarter: 2012Q2

REPORT INFORMATION
  Report Type: 
  Country: None (occurrence: None)
  Receive Date: 20120406
  Receipt Date: 20120402
  Transmission Date: 20120825
  Serious: Yes (Other)
  Sender: FDA-Public Use
  Company Number: US-AMGEN-USASP2011050859

PATIENT
  Sex: Male
  Weight: 72.562 kg

DRUGS (1)
  1. ENBREL [Suspect]
     Indication: RHEUMATOID ARTHRITIS
     Dosage: 25 MG, Q2WK

REACTIONS (2)
  - LUNG NEOPLASM MALIGNANT [None]
  - METASTASES TO LIVER [None]
